FAERS Safety Report 12172508 (Version 1)
Quarter: 2016Q1

REPORT INFORMATION
  Report Type: Spontaneous
  Country: GB (occurrence: GB)
  Receive Date: 20160311
  Receipt Date: 20160311
  Transmission Date: 20160526
  Serious: Yes (Other)
  Sender: FDA-Public Use
  Company Number: GB-ELI_LILLY_AND_COMPANY-GB201603001651

PATIENT
  Age: 26 Year
  Sex: Male

DRUGS (4)
  1. CISPLATIN. [Suspect]
     Active Substance: CISPLATIN
     Indication: PRODUCT USED FOR UNKNOWN INDICATION
     Dosage: 140 MG (100%), CYCLICAL
     Route: 065
     Dates: start: 20151209
  2. ALIMTA [Suspect]
     Active Substance: PEMETREXED DISODIUM
     Dosage: 975 MG (100%), CYCLICAL
     Route: 065
     Dates: start: 20151209
  3. CISPLATIN. [Suspect]
     Active Substance: CISPLATIN
     Dosage: 140 MG (100%), CYCLICAL
     Route: 065
     Dates: start: 20160117
  4. ALIMTA [Suspect]
     Active Substance: PEMETREXED DISODIUM
     Indication: PRODUCT USED FOR UNKNOWN INDICATION
     Dosage: 975 MG (100%), CYCLICAL
     Route: 065
     Dates: start: 20160117

REACTIONS (3)
  - Disease progression [Unknown]
  - Therapy responder [Unknown]
  - Retinopathy [Unknown]

NARRATIVE: CASE EVENT DATE: 20160125
